FAERS Safety Report 16089374 (Version 2)
Quarter: 2019Q1

REPORT INFORMATION
  Report Type: Spontaneous
  Country: TW (occurrence: TW)
  Receive Date: 20190319
  Receipt Date: 20190321
  Transmission Date: 20190418
  Serious: Yes (Death, Other)
  Sender: FDA-Public Use
  Company Number: TW-UCBSA-2019010051

PATIENT
  Sex: Male

DRUGS (1)
  1. CIMZIA [Suspect]
     Active Substance: CERTOLIZUMAB PEGOL
     Indication: RHEUMATOID ARTHRITIS
     Dosage: 400 MG, FIRST LOADING DOSE
     Route: 058
     Dates: start: 20181107, end: 20181107

REACTIONS (4)
  - Malaise [Unknown]
  - Nasopharyngitis [Unknown]
  - Death [Fatal]
  - Lung neoplasm malignant [Unknown]

NARRATIVE: CASE EVENT DATE: 201811
